FAERS Safety Report 4459209-3 (Version None)
Quarter: 2004Q3

REPORT INFORMATION
  Report Type: 
  Country: None (occurrence: None)
  Receive Date: 20040920
  Receipt Date: 20040920
  Transmission Date: 20050211
  Serious: Yes (Life-Threatening)
  Sender: FDA-Public Use
  Company Number: None

PATIENT
  Age: 54 Year
  Sex: Female
  Weight: 60 kg

DRUGS (3)
  1. VINORELBINE [Suspect]
     Indication: BREAST CANCER
     Dosage: 30 MG /M2 IV Q WK
     Route: 042
     Dates: start: 20040510
  2. DEXAMETHASONE [Concomitant]
  3. GRANISETRON [Concomitant]

REACTIONS (1)
  - LUNG INFILTRATION [None]
